FAERS Safety Report 4588450-4 (Version None)
Quarter: 2005Q1

REPORT INFORMATION
  Report Type: 
  Country: None (occurrence: None)
  Receive Date: 20050222
  Receipt Date: 20050211
  Transmission Date: 20050727
  Serious: Yes (Hospitalization)
  Sender: FDA-Public Use
  Company Number: US-JNJFOC-20050203341

PATIENT
  Sex: Female
  Weight: 54.43 kg

DRUGS (14)
  1. ELMIRON [Suspect]
     Indication: CYSTITIS INTERSTITIAL
     Route: 049
  2. VERAPAMIL [Concomitant]
     Indication: HYPERTENSION
  3. HYZAAR [Concomitant]
  4. HYZAAR [Concomitant]
     Indication: HYPERTENSION
  5. WELLBUTRIN [Concomitant]
  6. PROSED [Concomitant]
  7. PROSED [Concomitant]
  8. PROSED [Concomitant]
  9. PROSED [Concomitant]
  10. PROSED [Concomitant]
  11. PROSED [Concomitant]
     Indication: BLADDER SPASM
  12. ALEVE [Concomitant]
     Indication: BLADDER PAIN
  13. SKELAXIN [Concomitant]
     Indication: BACK PAIN
  14. HYDROCODONE [Concomitant]
     Indication: BACK PAIN

REACTIONS (3)
  - ALOPECIA [None]
  - HYPOTRICHOSIS [None]
  - ULCER HAEMORRHAGE [None]
